FAERS Safety Report 16410497 (Version 2)
Quarter: 2019Q3

REPORT INFORMATION
  Report Type: Spontaneous
  Country: US (occurrence: US)
  Receive Date: 20190610
  Receipt Date: 20190730
  Transmission Date: 20191004
  Serious: Yes (Hospitalization)
  Sender: FDA-Public Use
  Company Number: US-CELGENEUS-USA-20190602707

PATIENT
  Sex: Male
  Weight: 77.18 kg

DRUGS (29)
  1. CLOTRIMAZOLE. [Concomitant]
     Active Substance: CLOTRIMAZOLE
     Indication: PRODUCT USED FOR UNKNOWN INDICATION
     Dosage: 10 MILLIGRAM
     Route: 048
     Dates: start: 20190401
  2. OXYCODONE [Concomitant]
     Active Substance: OXYCODONE
     Indication: PAIN
     Dosage: 5 MILLIGRAM
     Route: 048
     Dates: start: 20190308
  3. ZITHROMAX [Concomitant]
     Active Substance: AZITHROMYCIN DIHYDRATE
     Indication: PRODUCT USED FOR UNKNOWN INDICATION
     Route: 048
     Dates: start: 20190624
  4. REVLIMID [Suspect]
     Active Substance: LENALIDOMIDE
     Indication: PLASMA CELL MYELOMA
     Dosage: 25 MILLIGRAM
     Route: 048
     Dates: start: 20190324
  5. OXYCODONE [Concomitant]
     Active Substance: OXYCODONE
     Dosage: 10 MILLIGRAM
     Route: 048
     Dates: start: 20190408
  6. KYPROLIS [Concomitant]
     Active Substance: CARFILZOMIB
     Route: 065
     Dates: start: 2019
  7. KYPROLIS [Concomitant]
     Active Substance: CARFILZOMIB
     Route: 065
     Dates: start: 2019, end: 20190618
  8. REVLIMID [Suspect]
     Active Substance: LENALIDOMIDE
     Dosage: 25 MILLIGRAM
     Route: 048
     Dates: start: 201904, end: 20190617
  9. TRAMADOL. [Concomitant]
     Active Substance: TRAMADOL
     Indication: PRODUCT USED FOR UNKNOWN INDICATION
     Dosage: 50 MILLIGRAM
     Route: 048
     Dates: start: 20190308
  10. XGEVA [Concomitant]
     Active Substance: DENOSUMAB
     Indication: PRODUCT USED FOR UNKNOWN INDICATION
     Route: 065
  11. DURAGESIC [Concomitant]
     Active Substance: FENTANYL
     Dosage: 75 MCG/HR
     Route: 061
     Dates: start: 20190408
  12. ACYCLOVIR. [Concomitant]
     Active Substance: ACYCLOVIR
     Route: 048
  13. CYCLOPHOSPHAMIDE. [Concomitant]
     Active Substance: CYCLOPHOSPHAMIDE
     Indication: PRODUCT USED FOR UNKNOWN INDICATION
     Dosage: 1 GRAM
     Route: 041
     Dates: start: 20190619
  14. ONDANSETRON [Concomitant]
     Active Substance: ONDANSETRON
     Indication: NAUSEA
     Dosage: 8 MILLIGRAM
     Route: 048
     Dates: start: 20190624
  15. ACYCLOVIR. [Concomitant]
     Active Substance: ACYCLOVIR
     Indication: PROPHYLAXIS
     Dosage: 400 MILLIGRAM
     Route: 048
     Dates: start: 20190702
  16. GABAPENTIN. [Concomitant]
     Active Substance: GABAPENTIN
     Indication: PRODUCT USED FOR UNKNOWN INDICATION
     Dosage: 300 MILLIGRAM
     Route: 048
     Dates: start: 20190708
  17. KYPROLIS [Concomitant]
     Active Substance: CARFILZOMIB
     Indication: PRODUCT USED FOR UNKNOWN INDICATION
     Route: 065
     Dates: start: 20190325
  18. AMLODIPINE [Concomitant]
     Active Substance: AMLODIPINE BESYLATE
     Indication: PRODUCT USED FOR UNKNOWN INDICATION
     Dosage: 5 MILLIGRAM
     Route: 048
     Dates: start: 20190409
  19. CYCLOBENZAPRINE. [Concomitant]
     Active Substance: CYCLOBENZAPRINE
     Indication: PRODUCT USED FOR UNKNOWN INDICATION
     Dosage: 30 MILLIGRAM
     Route: 048
     Dates: start: 20190308
  20. PROCRIT [Concomitant]
     Active Substance: ERYTHROPOIETIN
     Dosage: 40000 UNITS/ML
     Route: 058
     Dates: start: 201905, end: 20190715
  21. DEXAMETHASONE. [Concomitant]
     Active Substance: DEXAMETHASONE
     Dosage: 12 MILLIGRAM
     Route: 048
     Dates: start: 201904
  22. METHOCARBAMOL. [Concomitant]
     Active Substance: METHOCARBAMOL
     Indication: PRODUCT USED FOR UNKNOWN INDICATION
     Dosage: 2250 MILLIGRAM
     Route: 048
     Dates: start: 20190325
  23. CYTOXAN [Concomitant]
     Active Substance: CYCLOPHOSPHAMIDE
     Indication: PRODUCT USED FOR UNKNOWN INDICATION
     Dosage: 300 MILLIGRAM/SQ. METER
     Route: 041
     Dates: start: 20190624
  24. KYPROLIS [Concomitant]
     Active Substance: CARFILZOMIB
     Dosage: 56 MILLIGRAM/SQ. METER
     Route: 065
     Dates: start: 20190624
  25. DURAGESIC [Concomitant]
     Active Substance: FENTANYL
     Indication: SKIN DISORDER
     Dosage: 50 MCG/HR
     Route: 061
     Dates: start: 20190308
  26. DURAGESIC [Concomitant]
     Active Substance: FENTANYL
     Dosage: 75 MCG/HR
     Route: 061
     Dates: start: 20190325
  27. DEXAMETHASONE. [Concomitant]
     Active Substance: DEXAMETHASONE
     Indication: PLASMA CELL MYELOMA
     Dosage: 12 MILLIGRAM
     Route: 048
     Dates: start: 20190308
  28. PANTOPRAZOLE SODIUM. [Concomitant]
     Active Substance: PANTOPRAZOLE SODIUM
     Indication: PRODUCT USED FOR UNKNOWN INDICATION
     Dosage: 40 MILLIGRAM
     Route: 048
     Dates: start: 20190624
  29. PROCRIT [Concomitant]
     Active Substance: ERYTHROPOIETIN
     Indication: PRODUCT USED FOR UNKNOWN INDICATION
     Dosage: 40000 UNITS/ML
     Route: 058
     Dates: start: 20190513, end: 20190527

REACTIONS (2)
  - Deep vein thrombosis [Recovering/Resolving]
  - Pulmonary thrombosis [Recovering/Resolving]

NARRATIVE: CASE EVENT DATE: 2019
